FAERS Safety Report 7907356-3 (Version None)
Quarter: 2011Q4

REPORT INFORMATION
  Report Type: 
  Country: None (occurrence: None)
  Receive Date: 20111110
  Receipt Date: 20111108
  Transmission Date: 20120403
  Serious: No
  Sender: FDA-Public Use
  Company Number: DE-GLAXOSMITHKLINE-D0073123A

PATIENT
  Sex: Male
  Weight: 65 kg

DRUGS (1)
  1. DUAC [Suspect]
     Indication: ACNE
     Route: 061
     Dates: start: 20111007, end: 20111010

REACTIONS (4)
  - TOXIC SKIN ERUPTION [None]
  - DERMATITIS CONTACT [None]
  - BLISTER [None]
  - ERYTHEMA [None]
